FAERS Safety Report 7128580-6 (Version None)
Quarter: 2010Q4

REPORT INFORMATION
  Report Type: 
  Country: None (occurrence: None)
  Receive Date: 20101130
  Receipt Date: 20101118
  Transmission Date: 20110411
  Serious: Yes (Hospitalization, Other)
  Sender: FDA-Public Use
  Company Number: US-JNJFOC-20100703961

PATIENT
  Sex: Female

DRUGS (1)
  1. LEVAQUIN [Suspect]
     Indication: SINUSITIS
     Route: 048

REACTIONS (6)
  - ARTHRALGIA [None]
  - BURSITIS [None]
  - CARPAL TUNNEL SYNDROME [None]
  - JOINT SWELLING [None]
  - MENISCUS LESION [None]
  - TENDONITIS [None]
